FAERS Safety Report 12787916 (Version 1)
Quarter: 2016Q3

REPORT INFORMATION
  Report Type: Other
  Country: CA (occurrence: CA)
  Receive Date: 20160928
  Receipt Date: 20160928
  Transmission Date: 20161109
  Serious: Yes (Other)
  Sender: FDA-Public Use
  Company Number: CA-APOTEX-2016AP011805

PATIENT
  Sex: Female
  Weight: 50 kg

DRUGS (1)
  1. APO-OLANZAPINE [Suspect]
     Active Substance: OLANZAPINE
     Indication: SCHIZOPHRENIA
     Dosage: 15 MG, Q.H.
     Route: 065

REACTIONS (1)
  - Cheyne-Stokes respiration [Recovered/Resolved]
